FAERS Safety Report 6582105-2 (Version None)
Quarter: 2010Q1

REPORT INFORMATION
  Report Type: 
  Country: None (occurrence: None)
  Receive Date: 20100216
  Receipt Date: 20100204
  Transmission Date: 20100710
  Serious: Yes (Other)
  Sender: FDA-Public Use
  Company Number: GB-RANBAXY-2010RR-31015

PATIENT
  Age: 52 Year
  Sex: Male

DRUGS (4)
  1. GABAPENTIN [Suspect]
     Indication: NEURALGIA
     Dosage: 900 MG, UNK
  2. AMITRIPTYLINE HCL [Suspect]
     Indication: NEURALGIA
  3. AMLODIPINE [Concomitant]
  4. RANITIDINE [Concomitant]

REACTIONS (2)
  - ERECTILE DYSFUNCTION [None]
  - HYPOAESTHESIA [None]
